FAERS Safety Report 8246949-3 (Version None)
Quarter: 2012Q1

REPORT INFORMATION
  Report Type: 
  Country: None (occurrence: None)
  Receive Date: 20120330
  Receipt Date: 20120322
  Transmission Date: 20120608
  Serious: Yes (Death, Other)
  Sender: FDA-Public Use
  Company Number: JP-SANOFI-AVENTIS-2012SA021198

PATIENT
  Age: 80 Year
  Sex: Male

DRUGS (6)
  1. ZOLPIDEM [Suspect]
     Route: 048
     Dates: start: 20111201, end: 20111201
  2. LAXOBERON [Concomitant]
  3. ALOSENN [Concomitant]
  4. LENDORMIN [Concomitant]
     Dates: start: 20111201, end: 20111201
  5. OMEPRAZOLE [Concomitant]
  6. ASPIRIN [Concomitant]

REACTIONS (2)
  - DEATH [None]
  - DELIRIUM [None]
